FAERS Safety Report 15739179 (Version 1)
Quarter: 2018Q4

REPORT INFORMATION
  Report Type: Spontaneous
  Country: US (occurrence: US)
  Receive Date: 20181218
  Receipt Date: 20181218
  Transmission Date: 20190205
  Serious: Yes (Disabling)
  Sender: FDA-Public Use
  Company Number: None

PATIENT
  Age: 51 Year
  Sex: Female
  Weight: 68.4 kg

DRUGS (6)
  1. BACLOFEN. [Concomitant]
     Active Substance: BACLOFEN
  2. PRALUENT [Suspect]
     Active Substance: ALIROCUMAB
     Indication: TYPE IIA HYPERLIPIDAEMIA
     Dosage: ?          QUANTITY:1 INJECTION(S);OTHER FREQUENCY:TWICE PER MONTH;?
     Route: 058
  3. CREATOR [Concomitant]
  4. PRALUENT [Concomitant]
     Active Substance: ALIROCUMAB
  5. MELOXICAM. [Concomitant]
     Active Substance: MELOXICAM
  6. ASPIRIN. [Concomitant]
     Active Substance: ASPIRIN

REACTIONS (5)
  - Headache [None]
  - Blood test abnormal [None]
  - Hypertension [None]
  - Dysphonia [None]
  - Arthralgia [None]

NARRATIVE: CASE EVENT DATE: 20180915
